FAERS Safety Report 6863004-5 (Version None)
Quarter: 2010Q2

REPORT INFORMATION
  Report Type: 
  Country: None (occurrence: None)
  Receive Date: 20100528
  Receipt Date: 20100331
  Transmission Date: 20101027
  Serious: No
  Sender: FDA-Public Use
  Company Number: 009583

PATIENT
  Sex: Female
  Weight: 67.1 kg

DRUGS (4)
  1. LACOSAMIDE [Suspect]
     Indication: CONVULSION
     Dosage: 120 MG BID ORAL
     Route: 048
     Dates: start: 20100101
  2. NORVASC [Concomitant]
  3. HYDROCHLOROTHIAZIDE [Concomitant]
  4. LEVOTHYROXINE [Concomitant]

REACTIONS (1)
  - DIZZINESS [None]
